FAERS Safety Report 26209531 (Version 1)
Quarter: 2025Q4

REPORT INFORMATION
  Report Type: Spontaneous
  Country: EU (occurrence: EU)
  Receive Date: 20251229
  Receipt Date: 20251229
  Transmission Date: 20260117
  Serious: Yes (Life-Threatening, Hospitalization, Other)
  Sender: MYLAN
  Company Number: EU-SOL-20250239

PATIENT

DRUGS (64)
  1. EPINEPHRINE [Suspect]
     Active Substance: EPINEPHRINE
     Indication: Resuscitation
     Dosage: 2 MILLIGRAM
  2. EPINEPHRINE [Suspect]
     Active Substance: EPINEPHRINE
     Dosage: 2 MILLIGRAM
  3. EPINEPHRINE [Suspect]
     Active Substance: EPINEPHRINE
     Dosage: 2 MILLIGRAM
     Route: 064
  4. EPINEPHRINE [Suspect]
     Active Substance: EPINEPHRINE
     Dosage: 2 MILLIGRAM
     Route: 064
  5. EPINEPHRINE [Suspect]
     Active Substance: EPINEPHRINE
     Dosage: 2 MILLIGRAM
  6. EPINEPHRINE [Suspect]
     Active Substance: EPINEPHRINE
     Dosage: 2 MILLIGRAM
  7. EPINEPHRINE [Suspect]
     Active Substance: EPINEPHRINE
     Dosage: 2 MILLIGRAM
     Route: 064
  8. EPINEPHRINE [Suspect]
     Active Substance: EPINEPHRINE
     Dosage: 2 MILLIGRAM
     Route: 064
  9. OXYGEN [Suspect]
     Active Substance: OXYGEN
     Indication: Pulmonary oedema
     Dosage: UNK
  10. OXYGEN [Suspect]
     Active Substance: OXYGEN
     Dosage: UNK
  11. OXYGEN [Suspect]
     Active Substance: OXYGEN
     Dosage: UNK
     Route: 064
  12. OXYGEN [Suspect]
     Active Substance: OXYGEN
     Dosage: UNK
     Route: 064
  13. OXYGEN [Suspect]
     Active Substance: OXYGEN
     Dosage: UNK
  14. OXYGEN [Suspect]
     Active Substance: OXYGEN
     Dosage: UNK
  15. OXYGEN [Suspect]
     Active Substance: OXYGEN
     Dosage: UNK
     Route: 064
  16. OXYGEN [Suspect]
     Active Substance: OXYGEN
     Dosage: UNK
     Route: 064
  17. THIOPENTAL [Suspect]
     Active Substance: THIOPENTAL
     Indication: Acute respiratory failure
     Dosage: 400 MILLIGRAM
  18. THIOPENTAL [Suspect]
     Active Substance: THIOPENTAL
     Dosage: 400 MILLIGRAM
  19. THIOPENTAL [Suspect]
     Active Substance: THIOPENTAL
     Dosage: 400 MILLIGRAM
     Route: 064
  20. THIOPENTAL [Suspect]
     Active Substance: THIOPENTAL
     Dosage: 400 MILLIGRAM
     Route: 064
  21. THIOPENTAL [Suspect]
     Active Substance: THIOPENTAL
     Dosage: 400 MILLIGRAM
  22. THIOPENTAL [Suspect]
     Active Substance: THIOPENTAL
     Dosage: 400 MILLIGRAM
  23. THIOPENTAL [Suspect]
     Active Substance: THIOPENTAL
     Dosage: 400 MILLIGRAM
     Route: 064
  24. THIOPENTAL [Suspect]
     Active Substance: THIOPENTAL
     Dosage: 400 MILLIGRAM
     Route: 064
  25. FENTANYL [Suspect]
     Active Substance: FENTANYL
     Indication: Acute respiratory failure
     Dosage: 200 MICROGRAM
  26. FENTANYL [Suspect]
     Active Substance: FENTANYL
     Dosage: 200 MICROGRAM
  27. FENTANYL [Suspect]
     Active Substance: FENTANYL
     Dosage: 200 MICROGRAM
     Route: 064
  28. FENTANYL [Suspect]
     Active Substance: FENTANYL
     Dosage: 200 MICROGRAM
     Route: 064
  29. FENTANYL [Suspect]
     Active Substance: FENTANYL
     Dosage: 200 MICROGRAM
  30. FENTANYL [Suspect]
     Active Substance: FENTANYL
     Dosage: 200 MICROGRAM
  31. FENTANYL [Suspect]
     Active Substance: FENTANYL
     Dosage: 200 MICROGRAM
     Route: 064
  32. FENTANYL [Suspect]
     Active Substance: FENTANYL
     Dosage: 200 MICROGRAM
     Route: 064
  33. ROCURONIUM BROMIDE [Suspect]
     Active Substance: ROCURONIUM BROMIDE
     Indication: Acute respiratory failure
     Dosage: 100 MILLIGRAM
  34. ROCURONIUM BROMIDE [Suspect]
     Active Substance: ROCURONIUM BROMIDE
     Dosage: 100 MILLIGRAM
  35. ROCURONIUM BROMIDE [Suspect]
     Active Substance: ROCURONIUM BROMIDE
     Dosage: 100 MILLIGRAM
     Route: 064
  36. ROCURONIUM BROMIDE [Suspect]
     Active Substance: ROCURONIUM BROMIDE
     Dosage: 100 MILLIGRAM
     Route: 064
  37. ROCURONIUM BROMIDE [Suspect]
     Active Substance: ROCURONIUM BROMIDE
     Dosage: 100 MILLIGRAM
  38. ROCURONIUM BROMIDE [Suspect]
     Active Substance: ROCURONIUM BROMIDE
     Dosage: 100 MILLIGRAM
  39. ROCURONIUM BROMIDE [Suspect]
     Active Substance: ROCURONIUM BROMIDE
     Dosage: 100 MILLIGRAM
     Route: 064
  40. ROCURONIUM BROMIDE [Suspect]
     Active Substance: ROCURONIUM BROMIDE
     Dosage: 100 MILLIGRAM
     Route: 064
  41. TORECAN [Suspect]
     Active Substance: THIETHYLPERAZINE MALATE
     Indication: Pulmonary oedema
     Dosage: 6.5 MILLIGRAM
  42. TORECAN [Suspect]
     Active Substance: THIETHYLPERAZINE MALATE
     Dosage: 6.5 MILLIGRAM
  43. TORECAN [Suspect]
     Active Substance: THIETHYLPERAZINE MALATE
     Dosage: 6.5 MILLIGRAM
     Route: 064
  44. TORECAN [Suspect]
     Active Substance: THIETHYLPERAZINE MALATE
     Dosage: 6.5 MILLIGRAM
     Route: 064
  45. TORECAN [Suspect]
     Active Substance: THIETHYLPERAZINE MALATE
     Dosage: 6.5 MILLIGRAM
  46. TORECAN [Suspect]
     Active Substance: THIETHYLPERAZINE MALATE
     Dosage: 6.5 MILLIGRAM
  47. TORECAN [Suspect]
     Active Substance: THIETHYLPERAZINE MALATE
     Dosage: 6.5 MILLIGRAM
     Route: 064
  48. TORECAN [Suspect]
     Active Substance: THIETHYLPERAZINE MALATE
     Dosage: 6.5 MILLIGRAM
     Route: 064
  49. FUROSEMIDE [Suspect]
     Active Substance: FUROSEMIDE
     Indication: Pulmonary oedema
     Dosage: 40 MILLIGRAM
  50. FUROSEMIDE [Suspect]
     Active Substance: FUROSEMIDE
     Dosage: 40 MILLIGRAM
  51. FUROSEMIDE [Suspect]
     Active Substance: FUROSEMIDE
     Dosage: 40 MILLIGRAM
     Route: 064
  52. FUROSEMIDE [Suspect]
     Active Substance: FUROSEMIDE
     Dosage: 40 MILLIGRAM
     Route: 064
  53. FUROSEMIDE [Suspect]
     Active Substance: FUROSEMIDE
     Dosage: 40 MILLIGRAM
  54. FUROSEMIDE [Suspect]
     Active Substance: FUROSEMIDE
     Dosage: 40 MILLIGRAM
  55. FUROSEMIDE [Suspect]
     Active Substance: FUROSEMIDE
     Dosage: 40 MILLIGRAM
     Route: 064
  56. FUROSEMIDE [Suspect]
     Active Substance: FUROSEMIDE
     Dosage: 40 MILLIGRAM
     Route: 064
  57. MORPHINE [Suspect]
     Active Substance: MORPHINE
     Indication: Pulmonary oedema
     Dosage: 2 MILLIGRAM
  58. MORPHINE [Suspect]
     Active Substance: MORPHINE
     Dosage: 2 MILLIGRAM
  59. MORPHINE [Suspect]
     Active Substance: MORPHINE
     Dosage: 2 MILLIGRAM
     Route: 064
  60. MORPHINE [Suspect]
     Active Substance: MORPHINE
     Dosage: 2 MILLIGRAM
     Route: 064
  61. MORPHINE [Suspect]
     Active Substance: MORPHINE
     Dosage: 2 MILLIGRAM
  62. MORPHINE [Suspect]
     Active Substance: MORPHINE
     Dosage: 2 MILLIGRAM
  63. MORPHINE [Suspect]
     Active Substance: MORPHINE
     Dosage: 2 MILLIGRAM
     Route: 064
  64. MORPHINE [Suspect]
     Active Substance: MORPHINE
     Dosage: 2 MILLIGRAM
     Route: 064

REACTIONS (3)
  - Respiratory arrest [Recovering/Resolving]
  - Bradycardia neonatal [Recovering/Resolving]
  - Foetal exposure during pregnancy [Recovering/Resolving]
